FAERS Safety Report 7978499-3 (Version None)
Quarter: 2011Q4

REPORT INFORMATION
  Report Type: 
  Country: None (occurrence: None)
  Receive Date: 20111214
  Receipt Date: 20111207
  Transmission Date: 20120403
  Serious: Yes (Other)
  Sender: FDA-Public Use
  Company Number: AU-PFIZER INC-2011291204

PATIENT
  Age: 47 Year
  Sex: Female

DRUGS (7)
  1. RANITIDINE [Suspect]
     Indication: DUODENITIS
  2. CONTRAST MEDIA [Suspect]
  3. OMEPRAZOLE [Suspect]
     Indication: GASTRITIS
     Dosage: 40 MG, 1X/DAY
     Dates: start: 19951208, end: 19951211
  4. RANITIDINE [Suspect]
     Indication: GASTRITIS
     Dosage: 300 MG, 1X/DAY
     Dates: start: 19951129, end: 19951201
  5. PIROXICAM [Suspect]
     Indication: PAIN
     Dosage: 20 MG, 1X/DAY
     Dates: start: 19951102, end: 19951129
  6. OMEPRAZOLE [Suspect]
     Indication: DUODENITIS
  7. SURGAM [Suspect]
     Indication: PAIN
     Dosage: 600 MG, 1X/DAY
     Dates: start: 19951007, end: 19951102

REACTIONS (6)
  - HEPATIC FUNCTION ABNORMAL [None]
  - WEIGHT DECREASED [None]
  - PYELONEPHRITIS [None]
  - DEHYDRATION [None]
  - RENAL FAILURE ACUTE [None]
  - TUBULOINTERSTITIAL NEPHRITIS [None]
